FAERS Safety Report 18941933 (Version 1)
Quarter: 2021Q1

REPORT INFORMATION
  Report Type: Spontaneous
  Country: US (occurrence: US)
  Receive Date: 20210225
  Receipt Date: 20210225
  Transmission Date: 20210420
  Serious: No
  Sender: FDA-Public Use
  Company Number: US-ASTRAZENECA-2021A077266

PATIENT
  Sex: Female
  Weight: 62.6 kg

DRUGS (4)
  1. PULMICORT FLEXHALER [Suspect]
     Active Substance: BUDESONIDE
     Indication: LUNG DISORDER
     Dosage: 1 PUFF TWICE A DAY
     Route: 055
     Dates: start: 2018, end: 2020
  2. PULMICORT FLEXHALER [Suspect]
     Active Substance: BUDESONIDE
     Indication: ASTHMA
     Dosage: ONE PUFF TWICE A DAY
     Route: 055
     Dates: start: 2021
  3. PULMICORT FLEXHALER [Suspect]
     Active Substance: BUDESONIDE
     Indication: ASTHMA
     Dosage: 1 PUFF TWICE A DAY
     Route: 055
     Dates: start: 2018, end: 2020
  4. PULMICORT FLEXHALER [Suspect]
     Active Substance: BUDESONIDE
     Indication: LUNG DISORDER
     Dosage: ONE PUFF TWICE A DAY
     Route: 055
     Dates: start: 2021

REACTIONS (5)
  - Intentional product misuse [Not Recovered/Not Resolved]
  - Dental caries [Unknown]
  - Wrong technique in product usage process [Not Recovered/Not Resolved]
  - Aphthous ulcer [Unknown]
  - Alopecia [Unknown]
